FAERS Safety Report 7596347-0 (Version None)
Quarter: 2011Q3

REPORT INFORMATION
  Report Type: 
  Country: None (occurrence: None)
  Receive Date: 20110707
  Receipt Date: 20110629
  Transmission Date: 20111222
  Serious: Yes (Life-Threatening, Hospitalization)
  Sender: FDA-Public Use
  Company Number: US-B.I. PHARMACEUTICALS,INC./RIDGEFIELD-2011-BP-05987BP

PATIENT
  Sex: Female

DRUGS (7)
  1. PRADAXA [Suspect]
     Indication: TRANSIENT ISCHAEMIC ATTACK
  2. VIT D [Concomitant]
     Dosage: 2000 U
  3. DILTIAZEM CD [Concomitant]
     Dosage: 120 MG
  4. BENICAR [Concomitant]
     Dosage: 40 MG
  5. LIPITOR [Concomitant]
     Dosage: 40 MG
  6. PRADAXA [Suspect]
     Indication: ATRIAL FIBRILLATION
     Dosage: 300 MG
     Dates: start: 20110223, end: 20110224
  7. AMIODARONE HCL [Concomitant]
     Dosage: 200 MG

REACTIONS (3)
  - GASTRITIS EROSIVE [None]
  - GASTRITIS [None]
  - GASTROINTESTINAL HAEMORRHAGE [None]
